FAERS Safety Report 13564709 (Version 3)
Quarter: 2017Q2

REPORT INFORMATION
  Report Type: Report from Study
  Country: FR (occurrence: FR)
  Receive Date: 20170519
  Receipt Date: 20170619
  Transmission Date: 20170830
  Serious: Yes (Other)
  Sender: FDA-Public Use
  Company Number: FR-GILEAD-2017-0273142

PATIENT
  Age: 65 Year
  Sex: Male
  Weight: 83 kg

DRUGS (10)
  1. ACEBUTOLOL [Concomitant]
     Active Substance: ACEBUTOLOL
  2. ALFUZOSIN [Concomitant]
     Active Substance: ALFUZOSIN
  3. SIMEPREVIR [Suspect]
     Active Substance: SIMEPREVIR
     Indication: HEPATITIS C
     Dosage: 150 MG, QD
     Route: 065
     Dates: start: 20151109, end: 20160424
  4. APROVEL [Concomitant]
     Active Substance: IRBESARTAN
     Dosage: UNK
  5. IRBESARTAN. [Concomitant]
     Active Substance: IRBESARTAN
  6. IBUPROFEN. [Concomitant]
     Active Substance: IBUPROFEN
  7. SOFOSBUVIR [Suspect]
     Active Substance: SOFOSBUVIR
     Indication: HEPATITIS C
     Dosage: 400 MG, QD
     Route: 065
     Dates: start: 20151109, end: 20160424
  8. INEXIUM                            /01479302/ [Concomitant]
     Active Substance: ESOMEPRAZOLE MAGNESIUM
     Dosage: UNK
  9. PARACETAMOL [Concomitant]
     Active Substance: ACETAMINOPHEN
     Dosage: UNK
  10. ESOMEPRAZOLE [Concomitant]
     Active Substance: ESOMEPRAZOLE

REACTIONS (4)
  - Hepatocellular carcinoma [Unknown]
  - Hepatitis C [Not Recovered/Not Resolved]
  - Treatment failure [Not Recovered/Not Resolved]
  - Drug ineffective [Not Recovered/Not Resolved]

NARRATIVE: CASE EVENT DATE: 20160817
